FAERS Safety Report 13647601 (Version 7)
Quarter: 2020Q1

REPORT INFORMATION
  Report Type: Report from Study
  Country: JP (occurrence: JP)
  Receive Date: 20170613
  Receipt Date: 20200317
  Transmission Date: 20200409
  Serious: Yes (Death, Life-Threatening, Hospitalization, Other)
  Sender: FDA-Public Use
  Company Number: JP-INCYTE CORPORATION-2017IN004501

PATIENT

DRUGS (9)
  1. JAKAVI [Suspect]
     Active Substance: RUXOLITINIB
     Dosage: 40 MG, BID
     Route: 048
     Dates: start: 20170125, end: 20170214
  2. JAKAVI [Suspect]
     Active Substance: RUXOLITINIB
     Indication: POLYCYTHAEMIA VERA
     Dosage: 20 MG, BID
     Route: 048
     Dates: start: 20161122, end: 20161226
  3. JAKAVI [Suspect]
     Active Substance: RUXOLITINIB
     Dosage: 30 MG, BID
     Route: 048
     Dates: start: 20161226, end: 20170125
  4. HYDREA [Suspect]
     Active Substance: HYDROXYUREA
     Dosage: 4000 MG, UNK
     Route: 048
     Dates: start: 20170125, end: 20170202
  5. HYDREA [Suspect]
     Active Substance: HYDROXYUREA
     Dosage: 2000 MG, UNK
     Route: 048
     Dates: start: 20170203, end: 20170214
  6. HYDREA [Suspect]
     Active Substance: HYDROXYUREA
     Dosage: 3000 MG, UNK
     Route: 048
     Dates: start: 20161226, end: 20170124
  7. HYDREA [Suspect]
     Active Substance: HYDROXYUREA
     Indication: POLYCYTHAEMIA VERA
     Dosage: 500 MG, UNK
     Route: 048
     Dates: start: 20110627, end: 20151013
  8. HYDREA [Suspect]
     Active Substance: HYDROXYUREA
     Dosage: 1000 MG, UNK
     Route: 048
     Dates: start: 20151014, end: 20161123
  9. HYDREA [Suspect]
     Active Substance: HYDROXYUREA
     Dosage: 2000 MG, UNK
     Route: 048
     Dates: start: 20161124, end: 20161225

REACTIONS (14)
  - Anaemia [Unknown]
  - Physical deconditioning [Fatal]
  - Hyperhidrosis [Unknown]
  - Granulocyte count increased [Fatal]
  - Liver disorder [Not Recovered/Not Resolved]
  - Oxygen saturation decreased [Not Recovered/Not Resolved]
  - Polycythaemia vera [Fatal]
  - Abdominal distension [Unknown]
  - Blood lactate dehydrogenase increased [Unknown]
  - Platelet count decreased [Unknown]
  - Blast cell count increased [Fatal]
  - Bone marrow failure [Not Recovered/Not Resolved]
  - Acute leukaemia [Fatal]
  - White blood cell count increased [Unknown]

NARRATIVE: CASE EVENT DATE: 201701
